FAERS Safety Report 8144003-2 (Version None)
Quarter: 2012Q1

REPORT INFORMATION
  Report Type: 
  Country: None (occurrence: None)
  Receive Date: 20120217
  Receipt Date: 20120217
  Transmission Date: 20120608
  Serious: Yes (Life-Threatening, Hospitalization)
  Sender: FDA-Public Use
  Company Number: None

PATIENT
  Sex: Female
  Weight: 54 kg

DRUGS (8)
  1. DIGOXIN [Concomitant]
     Route: 048
  2. SPIRONOLACTONE-HYDROCHLOROTHIAZIDE 25-25MG [Concomitant]
     Route: 048
  3. IRON [Concomitant]
     Route: 048
  4. CARVEDILOL [Concomitant]
     Route: 048
  5. DABIGATRAN [Suspect]
     Indication: ATRIAL FIBRILLATION
     Dosage: 150MG
     Route: 048
  6. LOSARTAN POTASSIUM [Concomitant]
     Route: 048
  7. PANTOPRAZOLE [Concomitant]
     Route: 048
  8. ACETAMINOPHEN [Concomitant]
     Route: 048

REACTIONS (4)
  - EPISTAXIS [None]
  - GASTROINTESTINAL HAEMORRHAGE [None]
  - RENAL FAILURE ACUTE [None]
  - ANAEMIA [None]
